FAERS Safety Report 18354698 (Version 1)
Quarter: 2020Q4

REPORT INFORMATION
  Report Type: Spontaneous
  Country: US (occurrence: US)
  Receive Date: 20201007
  Receipt Date: 20201007
  Transmission Date: 20210114
  Serious: Yes (Death)
  Sender: FDA-Public Use
  Company Number: None

PATIENT
  Age: 69 Year
  Sex: Male
  Weight: 69.6 kg

DRUGS (14)
  1. CEFTRIAXONE 1GM IV DAILY [Concomitant]
     Dates: start: 20200614, end: 20200620
  2. CONVALESCENT PLASMA [Concomitant]
     Active Substance: HUMAN PLASMA
     Dates: start: 20200615, end: 20200615
  3. AZITHROMYCIN 500MG IV DAILY [Concomitant]
     Dates: start: 20200613, end: 20200617
  4. FAMOTIDINE 20MG FEED TUBE BID X18 DAYS THEN 20MG IV BID [Concomitant]
     Dates: start: 20200612, end: 20200705
  5. DEXAMETHASONE 10MG IV DAILY [Concomitant]
     Dates: start: 20200617, end: 20200626
  6. ENOXAPARIN 70MG SQ BID [Concomitant]
     Dates: start: 20200612, end: 20200705
  7. MELATONIN 6MG PO QHS [Concomitant]
     Dates: start: 20200616, end: 20200705
  8. REMDESIVIR. [Suspect]
     Active Substance: REMDESIVIR
     Indication: COVID-19 PNEUMONIA
     Route: 042
     Dates: start: 20200612, end: 20200621
  9. METHYLPREDNISONE 60MG IV Q6HR [Concomitant]
     Dates: start: 20200705, end: 20200705
  10. PIPERACILLIN/TAZOBACTAM 3.375GM IV Q6HR [Concomitant]
     Dates: start: 20200705, end: 20200705
  11. VANCOMYCIN 1750MG IV ONCE [Concomitant]
     Dates: start: 20200705, end: 20200705
  12. ZINC SULFATE 220MG FEED TUBE DAILY [Concomitant]
     Dates: start: 20200613, end: 20200630
  13. HYDROXYCHLOROQUINE 400MG PO Q12HR X2 DAYS THEN 400MG PO DAILY [Concomitant]
     Dates: start: 20200612, end: 20200615
  14. INSULIN GLARGINE/LISPRO [Concomitant]
     Dates: start: 20200613, end: 20200705

REACTIONS (33)
  - Monocyte count decreased [None]
  - Blood phosphorus decreased [None]
  - Alanine aminotransferase increased [None]
  - Serum ferritin increased [None]
  - Respiratory acidosis [None]
  - Respiratory failure [None]
  - Acute kidney injury [None]
  - Mean cell volume increased [None]
  - Platelet morphology abnormal [None]
  - Band neutrophil count increased [None]
  - Monocyte percentage decreased [None]
  - Lymphocyte count decreased [None]
  - Blood albumin decreased [None]
  - Blood alkaline phosphatase increased [None]
  - White blood cell count decreased [None]
  - Mean cell haemoglobin increased [None]
  - Neutrophil count increased [None]
  - Haemoglobin decreased [None]
  - Basophil percentage increased [None]
  - Fibrin D dimer increased [None]
  - Chronic kidney disease [None]
  - Red blood cell count decreased [None]
  - Eosinophil percentage decreased [None]
  - Red blood cell nucleated morphology present [None]
  - Eosinophil count decreased [None]
  - Protein total decreased [None]
  - Aspartate aminotransferase increased [None]
  - Haematocrit decreased [None]
  - Lymphocyte percentage decreased [None]
  - Procalcitonin increased [None]
  - Metabolic acidosis [None]
  - Blood bilirubin increased [None]
  - Bilirubin conjugated increased [None]

NARRATIVE: CASE EVENT DATE: 20200705
